FAERS Safety Report 21889533 (Version 1)
Quarter: 2023Q1

REPORT INFORMATION
  Report Type: Spontaneous
  Country: US (occurrence: US)
  Receive Date: 20230120
  Receipt Date: 20230120
  Transmission Date: 20230417
  Serious: Yes (Hospitalization)
  Sender: FDA-Public Use
  Company Number: US-BRISTOL-MYERS SQUIBB COMPANY-2023-008275

PATIENT
  Age: 62 Year
  Sex: Female
  Weight: 79.3 kg

DRUGS (1)
  1. POMALYST [Suspect]
     Active Substance: POMALIDOMIDE
     Indication: Acute leukaemia
     Dosage: 21D ON 7D OFF
     Route: 048

REACTIONS (2)
  - Hospitalisation [Unknown]
  - Off label use [Unknown]
